FAERS Safety Report 12959501 (Version 2)
Quarter: 2016Q4

REPORT INFORMATION
  Report Type: Spontaneous
  Country: IT (occurrence: IT)
  Receive Date: 20161121
  Receipt Date: 20161125
  Transmission Date: 20170207
  Serious: No
  Sender: FDA-Public Use
  Company Number: IT-009507513-1611ITA005542

PATIENT
  Age: 79 Year
  Sex: Female

DRUGS (5)
  1. RIFACOL [Concomitant]
     Active Substance: RIFAXIMIN
     Dosage: UNK
  2. ESAPENT [Concomitant]
     Dosage: UNK
  3. NOVORAPID [Concomitant]
     Active Substance: INSULIN ASPART
     Dosage: STRENGTH: 100 U/ML
  4. EZETROL 10 MG COMPRESSE [Suspect]
     Active Substance: EZETIMIBE
     Indication: HYPERCHOLESTEROLAEMIA
     Dosage: 10 MG, DAILY
     Route: 048
     Dates: start: 20161022, end: 20161027
  5. ROCALTROL [Concomitant]
     Active Substance: CALCITRIOL
     Dosage: UNK

REACTIONS (1)
  - Pain in extremity [Unknown]

NARRATIVE: CASE EVENT DATE: 20161023
